FAERS Safety Report 11149097 (Version 1)
Quarter: 2015Q2

REPORT INFORMATION
  Report Type: Spontaneous
  Country: US (occurrence: None)
  Receive Date: 20150528
  Receipt Date: 20150528
  Transmission Date: 20150821
  Serious: Yes (Hospitalization, Disabling, Other)
  Sender: FDA-Public Use
  Company Number: None

PATIENT
  Age: 53 Year
  Sex: Male
  Weight: 114.76 kg

DRUGS (1)
  1. FLUTICASONE [Suspect]
     Active Substance: FLUTICASONE\FLUTICASONE PROPIONATE
     Indication: MULTIPLE ALLERGIES
     Dosage: SPRAYED INTO MY NOSE
     Route: 045
     Dates: end: 20150515

REACTIONS (4)
  - Vision blurred [None]
  - Headache [None]
  - Epistaxis [None]
  - Blindness [None]

NARRATIVE: CASE EVENT DATE: 20150514
